FAERS Safety Report 12295026 (Version 1)
Quarter: 2016Q2

REPORT INFORMATION
  Report Type: Spontaneous
  Country: US (occurrence: None)
  Receive Date: 20160421
  Receipt Date: 20160421
  Transmission Date: 20160815
  Serious: No
  Sender: FDA-Public Use
  Company Number: None

PATIENT
  Age: 36 Year
  Sex: Female
  Weight: 78.02 kg

DRUGS (3)
  1. WOMEN^S GUMMY MULTIVITAMIN [Concomitant]
  2. CRYSELLE [Suspect]
     Active Substance: ETHINYL ESTRADIOL\NORGESTREL
     Indication: CONTRACEPTION
     Route: 048
     Dates: start: 20160101, end: 20160315
  3. BIRTH CONTROL [Concomitant]
     Active Substance: UNSPECIFIED INGREDIENT

REACTIONS (2)
  - Hypersensitivity [None]
  - Reaction to drug excipients [None]

NARRATIVE: CASE EVENT DATE: 20160415
